FAERS Safety Report 5821375-2 (Version None)
Quarter: 2008Q3

REPORT INFORMATION
  Report Type: 
  Country: None (occurrence: None)
  Receive Date: 20080724
  Receipt Date: 20080717
  Transmission Date: 20090109
  Serious: Yes (Other)
  Sender: FDA-Public Use
  Company Number: JM-JNJFOC-20080704002

PATIENT
  Age: 25 Year
  Sex: Female

DRUGS (4)
  1. HALDOL [Suspect]
     Indication: BIPOLAR DISORDER
  2. LITHIUM CARBONATE [Suspect]
     Indication: BIPOLAR DISORDER
  3. COGENTIN [Suspect]
     Indication: BIPOLAR DISORDER
  4. MULTI-VITAMINS [Concomitant]

REACTIONS (11)
  - ARRESTED LABOUR [None]
  - BLOOD CREATININE DECREASED [None]
  - BLOOD PRESSURE INCREASED [None]
  - BLOOD UREA DECREASED [None]
  - CAESAREAN SECTION [None]
  - DRUG EXPOSURE DURING PREGNANCY [None]
  - INDUCED LABOUR [None]
  - LIPIDS DECREASED [None]
  - PROTHROMBIN TIME SHORTENED [None]
  - WEIGHT DECREASED [None]
  - WEIGHT INCREASED [None]
